FAERS Safety Report 10149939 (Version 1)
Quarter: 2014Q2

REPORT INFORMATION
  Report Type: Spontaneous
  Country: GB (occurrence: GB)
  Receive Date: 20140502
  Receipt Date: 20140502
  Transmission Date: 20141212
  Serious: Yes (Other)
  Sender: FDA-Public Use
  Company Number: GB-WATSON-2014-08534

PATIENT
  Age: 4 Year
  Sex: 0

DRUGS (1)
  1. OXYBUTYNIN (UNKNOWN) [Suspect]
     Indication: HYPERTONIC BLADDER
     Dosage: 2.5 MG, BID
     Route: 048
     Dates: start: 20131125, end: 20140408

REACTIONS (1)
  - Hallucination [Unknown]
